FAERS Safety Report 5166652-6 (Version None)
Quarter: 2006Q4

REPORT INFORMATION
  Report Type: 
  Country: None (occurrence: None)
  Receive Date: 20061130
  Receipt Date: 20061130
  Transmission Date: 20070319
  Serious: Yes (Other)
  Sender: FDA-Public Use
  Company Number: None

PATIENT
  Age: 33 Year
  Sex: Female

DRUGS (5)
  1. BACTRIM [Suspect]
     Dosage: 1 BID
     Dates: start: 20051023, end: 20051116
  2. ALLEGRA-D 12 HOUR [Concomitant]
  3. CLARITIN-D [Concomitant]
  4. NASONEX [Concomitant]
  5. DEPO-PROVERA [Concomitant]

REACTIONS (15)
  - ABDOMINAL PAIN UPPER [None]
  - ADVERSE DRUG REACTION [None]
  - DIARRHOEA [None]
  - EOSINOPHILIA [None]
  - ERYTHEMA [None]
  - HEPATIC ENZYME INCREASED [None]
  - HEPATIC TRAUMA [None]
  - NAUSEA [None]
  - PRURITUS [None]
  - PYREXIA [None]
  - RASH GENERALISED [None]
  - RASH MACULO-PAPULAR [None]
  - SKIN TIGHTNESS [None]
  - SYNCOPE VASOVAGAL [None]
  - WEIGHT DECREASED [None]
